FAERS Safety Report 6789115-0 (Version None)
Quarter: 2010Q2

REPORT INFORMATION
  Report Type: 
  Country: None (occurrence: None)
  Receive Date: 20100623
  Receipt Date: 20080627
  Transmission Date: 20101027
  Serious: Yes (Other)
  Sender: FDA-Public Use
  Company Number: US-PFIZER INC-2008054444

PATIENT
  Sex: Female
  Weight: 114 kg

DRUGS (10)
  1. SOLU-MEDROL [Suspect]
     Indication: BRONCHIAL HYPERREACTIVITY
     Dates: start: 20080625
  2. DEPO-MEDROL [Suspect]
     Indication: BRONCHIAL HYPERREACTIVITY
  3. INSULIN [Concomitant]
  4. MACROBID [Concomitant]
  5. DOXEPIN HCL [Concomitant]
  6. NORVASC [Concomitant]
  7. METOPROLOL TARTRATE [Concomitant]
  8. NITROGLYCERIN [Concomitant]
  9. CLONIDINE [Concomitant]
  10. AMARYL [Concomitant]

REACTIONS (2)
  - BLOOD PRESSURE INCREASED [None]
  - WRONG DRUG ADMINISTERED [None]
